FAERS Safety Report 11350475 (Version 1)
Quarter: 2015Q3

REPORT INFORMATION
  Report Type: Spontaneous
  Country: US (occurrence: None)
  Receive Date: 20150806
  Receipt Date: 20150806
  Transmission Date: 20151125
  Serious: No
  Sender: FDA-Public Use
  Company Number: None

PATIENT
  Age: 43 Year
  Sex: Male
  Weight: 85.28 kg

DRUGS (4)
  1. VITAMIN D3 [Concomitant]
     Active Substance: CHOLECALCIFEROL
  2. FISH OIL [Concomitant]
     Active Substance: FISH OIL
  3. LEXAPRO [Suspect]
     Active Substance: ESCITALOPRAM OXALATE
     Indication: DEPRESSION
     Dosage: 2 DAILY  ONCE DAILY  TAKEN BY MOUTH
     Route: 048
     Dates: start: 20150707, end: 20150804
  4. LEXAPRO [Suspect]
     Active Substance: ESCITALOPRAM OXALATE
     Indication: ANXIETY
     Dosage: 2 DAILY  ONCE DAILY  TAKEN BY MOUTH
     Route: 048
     Dates: start: 20150707, end: 20150804

REACTIONS (4)
  - Apathy [None]
  - Anorgasmia [None]
  - Somnolence [None]
  - Diarrhoea [None]

NARRATIVE: CASE EVENT DATE: 20150804
